FAERS Safety Report 9625495 (Version 2)
Quarter: 2013Q4

REPORT INFORMATION
  Report Type: Spontaneous
  Country: JP (occurrence: JP)
  Receive Date: 20131016
  Receipt Date: 20131108
  Transmission Date: 20140711
  Serious: Yes (Hospitalization)
  Sender: FDA-Public Use
  Company Number: JP-PFIZER INC-2013295493

PATIENT
  Age: 69 Year
  Sex: Male

DRUGS (7)
  1. ANCARON [Suspect]
     Indication: VENTRICULAR TACHYCARDIA
     Dosage: 200 MG, TWICE DAILY
     Route: 048
     Dates: start: 20130914, end: 20130927
  2. ANCARON [Suspect]
     Dosage: 100 MG, TWICE DAILY
     Route: 048
     Dates: start: 20130928, end: 20131008
  3. ZETIA [Concomitant]
     Indication: HYPERCHOLESTEROLAEMIA
     Dosage: UNK
  4. AMLODIN [Concomitant]
     Indication: HYPERTENSION
     Dosage: UNK
  5. MAINTATE [Concomitant]
     Indication: ATRIAL FIBRILLATION
     Dosage: UNK
  6. WARFARIN [Concomitant]
     Indication: ATRIAL FIBRILLATION
     Dosage: UNK
  7. SINGULAIR [Concomitant]
     Indication: EMPHYSEMA
     Dosage: UNK

REACTIONS (3)
  - Inappropriate antidiuretic hormone secretion [Unknown]
  - Blood sodium decreased [Unknown]
  - Loss of consciousness [Unknown]
